APPROVED DRUG PRODUCT: FESOTERODINE FUMARATE
Active Ingredient: FESOTERODINE FUMARATE
Strength: 8MG
Dosage Form/Route: TABLET, EXTENDED RELEASE;ORAL
Application: A205012 | Product #002
Applicant: ACCORD HEALTHCARE INC
Approved: Jan 4, 2023 | RLD: No | RS: No | Type: DISCN